FAERS Safety Report 23187276 (Version 1)
Quarter: 2023Q4

REPORT INFORMATION
  Report Type: Spontaneous
  Country: US (occurrence: None)
  Receive Date: 20231115
  Receipt Date: 20231115
  Transmission Date: 20240110
  Serious: Yes (Hospitalization)
  Sender: FDA-Public Use
  Company Number: None

PATIENT
  Age: 35 Year
  Sex: Male
  Weight: 87 kg

DRUGS (3)
  1. CYCLOPHOSPHAMIDE [Suspect]
     Active Substance: CYCLOPHOSPHAMIDE
     Dates: end: 20231015
  2. DASATINIB [Suspect]
     Active Substance: DASATINIB
     Dates: end: 20231025
  3. METHOTREXATE [Suspect]
     Active Substance: METHOTREXATE
     Dates: end: 20231013

REACTIONS (5)
  - Thrombocytopenia [None]
  - Leukopenia [None]
  - Neutropenia [None]
  - Anaemia [None]
  - Transfusion [None]

NARRATIVE: CASE EVENT DATE: 20231030
